FAERS Safety Report 8356663-1 (Version None)
Quarter: 2012Q2

REPORT INFORMATION
  Report Type: 
  Country: None (occurrence: None)
  Receive Date: 20120514
  Receipt Date: 20120510
  Transmission Date: 20120825
  Serious: Yes (Death, Hospitalization)
  Sender: FDA-Public Use
  Company Number: PHEH2012US005971

PATIENT
  Sex: Female

DRUGS (2)
  1. TASIGNA [Suspect]
     Indication: CHRONIC MYELOID LEUKAEMIA
     Dosage: 400 MG, BID
     Route: 048
     Dates: start: 20111219, end: 20120301
  2. TASIGNA [Suspect]
     Dosage: 400 MG, BID
     Dates: start: 20120313

REACTIONS (4)
  - DIARRHOEA [None]
  - CROHN'S DISEASE [None]
  - BLOOD POTASSIUM DECREASED [None]
  - DEATH [None]
